FAERS Safety Report 6395768-1 (Version None)
Quarter: 2009Q4

REPORT INFORMATION
  Report Type: 
  Country: None (occurrence: None)
  Receive Date: 20091009
  Receipt Date: 20090930
  Transmission Date: 20100525
  Serious: Yes (Hospitalization)
  Sender: FDA-Public Use
  Company Number: JP-ABBOTT-09P-087-0592878-00

PATIENT
  Age: 79 Year
  Sex: Male

DRUGS (7)
  1. LEUPLIN SR FOR INJECTION [Suspect]
     Indication: PROSTATE CANCER STAGE II
     Route: 058
     Dates: start: 20070209, end: 20080208
  2. DIGOXIN [Concomitant]
     Indication: ATRIAL FIBRILLATION
  3. LASIX [Concomitant]
     Indication: HYPERTENSION
     Route: 048
  4. NORVASC [Concomitant]
     Indication: HYPERTENSION
     Route: 048
  5. DIOVAN [Concomitant]
     Indication: HYPERTENSION
     Route: 048
  6. URSO 250 [Concomitant]
     Indication: HEPATITIS C
     Route: 048
  7. HALCION [Concomitant]
     Indication: INSOMNIA
     Route: 048

REACTIONS (1)
  - MYOCARDIAL INFARCTION [None]
